FAERS Safety Report 21678222 (Version 1)
Quarter: 2022Q4

REPORT INFORMATION
  Report Type: Spontaneous
  Country: NL (occurrence: NL)
  Receive Date: 20221203
  Receipt Date: 20221203
  Transmission Date: 20230113
  Serious: Yes (Life-Threatening)
  Sender: FDA-Public Use
  Company Number: None

PATIENT
  Sex: Female
  Weight: 69 kg

DRUGS (2)
  1. ESCITALOPRAM OXALATE [Suspect]
     Active Substance: ESCITALOPRAM OXALATE
     Indication: Anxiety
     Dosage: 10 MILLIGRAM DAILY; 1 X PER DAY 1 PIECE, ESCITALOPRAM 10MG / ESCITALOPRAM TEVA 10MG, UNIT DOSE : 10
     Dates: start: 20221025, end: 20221028
  2. HYDROCHLOROTHIAZIDE [Concomitant]
     Active Substance: HYDROCHLOROTHIAZIDE
     Indication: Hypertension
     Dosage: 12.5 MILLIGRAM DAILY; 1 X PER DAY 1 PIECE, HYDROCHLOROTHIAZIDE 12.5MG / BRAND NAME NOT SPECIFIED, UN
     Dates: start: 20211214

REACTIONS (6)
  - Syncope [Recovering/Resolving]
  - Nausea [Recovering/Resolving]
  - Dizziness [Recovering/Resolving]
  - Anal incontinence [Recovering/Resolving]
  - Feeling abnormal [Recovered/Resolved]
  - Headache [Recovered/Resolved]
